FAERS Safety Report 13757049 (Version 14)
Quarter: 2018Q2

REPORT INFORMATION
  Report Type: Report from Study
  Country: JP (occurrence: JP)
  Receive Date: 20170715
  Receipt Date: 20180528
  Transmission Date: 20180711
  Serious: Yes (Hospitalization, Other)
  Sender: FDA-Public Use
  Company Number: JP-AMGEN-JPNCT2017089658

PATIENT
  Age: 71 Year
  Sex: Female
  Weight: 39.7 kg

DRUGS (28)
  1. FLUOROURACIL. [Suspect]
     Active Substance: FLUOROURACIL
     Indication: METASTASES TO LUNG
     Dosage: 317 MG/M2, Q2WEEKS
     Route: 040
     Dates: start: 20170803, end: 20170803
  2. FLUOROURACIL. [Suspect]
     Active Substance: FLUOROURACIL
     Dosage: 317 MG/M2, Q2WK
     Route: 040
     Dates: start: 20171012, end: 20171109
  3. MINOCYCLINE HYDROCHLORIDE. [Concomitant]
     Active Substance: MINOCYCLINE HYDROCHLORIDE
     Indication: SKIN DISORDER
     Dosage: 100 MG, BID
     Route: 048
     Dates: start: 20170420
  4. RETINOL [Concomitant]
     Active Substance: RETINOL
     Indication: DRY SKIN PROPHYLAXIS
     Dosage: UNK
     Route: 062
     Dates: start: 20170420
  5. PANITUMUMAB [Suspect]
     Active Substance: PANITUMUMAB
     Indication: METASTASES TO LUNG
     Dosage: 4.7 MG/KG, Q2WK
     Route: 041
     Dates: start: 20170831, end: 20170831
  6. CALCIUM LEVOFOLINATE [Suspect]
     Active Substance: LEVOLEUCOVORIN CALCIUM
     Indication: COLON CANCER
     Dosage: 275 MG, Q2WEEKS
     Route: 041
     Dates: start: 20170420, end: 20170622
  7. FLUOROURACIL. [Suspect]
     Active Substance: FLUOROURACIL
     Indication: COLON CANCER
     Dosage: 540 MG, Q2WK
     Route: 040
     Dates: start: 20170420, end: 20170622
  8. FLUOROURACIL. [Suspect]
     Active Substance: FLUOROURACIL
     Dosage: 1917 MG/M2, Q2WEEKS
     Route: 041
     Dates: start: 20170831, end: 20170831
  9. OXALIPLATIN. [Suspect]
     Active Substance: OXALIPLATIN
     Dosage: 66 MG/M2, Q2WEEKS
     Route: 041
     Dates: start: 20171012, end: 20171109
  10. CALCIUM LEVOFOLINATE [Suspect]
     Active Substance: LEVOLEUCOVORIN CALCIUM
     Indication: METASTASES TO LUNG
     Dosage: UNK UNK, Q2WEEKS
     Route: 041
     Dates: start: 20170831, end: 20170831
  11. CALCIUM LEVOFOLINATE [Suspect]
     Active Substance: LEVOLEUCOVORIN CALCIUM
     Dosage: UNK UNK, Q2WEEKS
     Route: 041
     Dates: start: 20171012, end: 20171109
  12. FLUOROURACIL. [Suspect]
     Active Substance: FLUOROURACIL
     Indication: METASTASES TO LIVER
     Dosage: 3250 MG, Q2WK
     Route: 041
     Dates: start: 20170420, end: 20170622
  13. FLUOROURACIL. [Suspect]
     Active Substance: FLUOROURACIL
     Dosage: 1917 MG/M2, Q2WEEKS
     Route: 041
     Dates: start: 20170803, end: 20170803
  14. PANAX GINSENG ROOT W/ZANTHOXYLUM PIPERITUM PE [Concomitant]
     Indication: ABDOMINAL DISTENSION
     Dosage: 1 DF, TID
     Route: 048
     Dates: start: 20170408
  15. HYDROCORTISONE BUTYRATE. [Concomitant]
     Active Substance: HYDROCORTISONE BUTYRATE
     Indication: DERMATITIS
     Dosage: UNK UNK, BID
     Route: 062
     Dates: start: 20170420
  16. DIFLUPREDNATE [Concomitant]
     Active Substance: DIFLUPREDNATE
     Indication: DERMATITIS
     Dosage: UNK, BID
     Route: 062
     Dates: start: 20170420
  17. OXALIPLATIN. [Suspect]
     Active Substance: OXALIPLATIN
     Indication: METASTASES TO LIVER
     Dosage: 66 MG/M2, Q2WEEKS
     Route: 041
     Dates: start: 20170803, end: 20170803
  18. MUCOPOLYSACCHARIDE POLYSULFURIC ACID ESTER [Concomitant]
     Indication: DRY SKIN PROPHYLAXIS
     Dosage: UNK
     Route: 062
     Dates: start: 20170420
  19. PANITUMUMAB [Suspect]
     Active Substance: PANITUMUMAB
     Indication: COLON CANCER
     Dosage: 250 MG, Q2WK
     Route: 041
     Dates: start: 20170420, end: 20170622
  20. PANITUMUMAB [Suspect]
     Active Substance: PANITUMUMAB
     Dosage: 4.7 MG/KG, Q2WK
     Route: 041
     Dates: start: 20171012, end: 20171109
  21. OXALIPLATIN. [Suspect]
     Active Substance: OXALIPLATIN
     Indication: METASTASES TO LUNG
     Dosage: 66 MG/M2, Q2WEEKS
     Route: 041
     Dates: start: 20170831, end: 20170831
  22. CALCIUM LEVOFOLINATE [Suspect]
     Active Substance: LEVOLEUCOVORIN CALCIUM
     Indication: METASTASES TO LIVER
     Dosage: UNK UNK, Q2WEEKS
     Route: 041
     Dates: start: 20170803, end: 20170803
  23. FLUOROURACIL. [Suspect]
     Active Substance: FLUOROURACIL
     Dosage: 1917 MG/M2, Q2WEEKS
     Route: 041
     Dates: start: 20171012, end: 20171109
  24. WHITE SOFT PARAFFIN [Concomitant]
     Active Substance: PARAFFIN
     Indication: DRY SKIN PROPHYLAXIS
     Dosage: UNK
     Route: 062
     Dates: start: 20170420
  25. OXALIPLATIN. [Suspect]
     Active Substance: OXALIPLATIN
     Indication: COLON CANCER
     Dosage: 115 MG, Q2WEEKS
     Route: 041
     Dates: start: 20170420, end: 20170622
  26. FLUOROURACIL. [Suspect]
     Active Substance: FLUOROURACIL
     Dosage: 317 MG/M2, Q2WK
     Route: 040
     Dates: start: 20170831, end: 20170831
  27. FLUOROURACIL. [Suspect]
     Active Substance: FLUOROURACIL
     Dosage: UNK
     Route: 042
     Dates: start: 20180307
  28. PANITUMUMAB [Suspect]
     Active Substance: PANITUMUMAB
     Indication: METASTASES TO LIVER
     Dosage: 4.7 MG/KG, Q2WK
     Route: 041
     Dates: start: 20170803, end: 20170803

REACTIONS (30)
  - Oedema [Recovered/Resolved]
  - Dry skin [Recovered/Resolved]
  - Decreased appetite [Recovered/Resolved]
  - Pain of skin [Recovered/Resolved]
  - Decubitus ulcer [Recovered/Resolved]
  - Stomatitis [Recovered/Resolved]
  - Dermatitis acneiform [Recovered/Resolved]
  - Diarrhoea [Recovered/Resolved]
  - Stoma site inflammation [Recovered/Resolved]
  - Peripheral motor neuropathy [Not Recovered/Not Resolved]
  - Nail disorder [Recovered/Resolved]
  - Decreased appetite [Recovered/Resolved]
  - Nausea [Recovered/Resolved]
  - Embolism [Not Recovered/Not Resolved]
  - Pigmentation disorder [Recovered/Resolved]
  - Pigmentation disorder [Not Recovered/Not Resolved]
  - Oedema peripheral [Not Recovered/Not Resolved]
  - Nail disorder [Recovered/Resolved]
  - Pruritus [Recovered/Resolved]
  - Dysgeusia [Recovered/Resolved]
  - Dysgeusia [Recovered/Resolved]
  - Photosensitivity reaction [Recovered/Resolved]
  - Pain of skin [Recovered/Resolved]
  - Palmar-plantar erythrodysaesthesia syndrome [Not Recovered/Not Resolved]
  - Stomatitis [Not Recovered/Not Resolved]
  - Vomiting [Recovered/Resolved]
  - Malaise [Recovered/Resolved]
  - Peripheral sensory neuropathy [Not Recovered/Not Resolved]
  - Constipation [Recovered/Resolved]
  - Paronychia [Not Recovered/Not Resolved]

NARRATIVE: CASE EVENT DATE: 20170707
